FAERS Safety Report 14145404 (Version 1)
Quarter: 2017Q4

REPORT INFORMATION
  Report Type: Spontaneous
  Country: US (occurrence: None)
  Receive Date: 20171030
  Receipt Date: 20171030
  Transmission Date: 20180321
  Serious: Yes (Hospitalization)
  Sender: FDA-Public Use
  Company Number: None

PATIENT
  Age: 48 Year
  Sex: Female

DRUGS (2)
  1. OXYBUTYNIN. [Suspect]
     Active Substance: OXYBUTYNIN CHLORIDE
     Indication: PAIN
     Route: 048
     Dates: start: 20170215, end: 20170217
  2. OXYBUTYNIN. [Suspect]
     Active Substance: OXYBUTYNIN CHLORIDE
     Indication: SEIZURE
     Route: 048
     Dates: start: 20170215, end: 20170217

REACTIONS (3)
  - Nausea [None]
  - Seizure [None]
  - Headache [None]

NARRATIVE: CASE EVENT DATE: 20170217
